FAERS Safety Report 7702951-9 (Version None)
Quarter: 2011Q3

REPORT INFORMATION
  Report Type: 
  Country: None (occurrence: None)
  Receive Date: 20110823
  Receipt Date: 20110811
  Transmission Date: 20111222
  Serious: No
  Sender: FDA-Public Use
  Company Number: PHHY2011NL72451

PATIENT

DRUGS (1)
  1. TASIGNA [Suspect]
     Dosage: UNK

REACTIONS (1)
  - GASTROOESOPHAGEAL REFLUX DISEASE [None]
